FAERS Safety Report 7426418-0 (Version None)
Quarter: 2011Q2

REPORT INFORMATION
  Report Type: 
  Country: None (occurrence: None)
  Receive Date: 20110420
  Receipt Date: 20110418
  Transmission Date: 20111010
  Serious: Yes (Hospitalization, Other)
  Sender: FDA-Public Use
  Company Number: US-PFIZER INC-2011038341

PATIENT
  Sex: Male

DRUGS (2)
  1. ALPRAZOLAM [Concomitant]
     Indication: ANXIETY DISORDER
     Dosage: UNK
     Dates: start: 20071004, end: 20090101
  2. CHANTIX [Suspect]
     Indication: SMOKING CESSATION THERAPY
     Dosage: 1 MG, UNK
     Dates: start: 20080625, end: 20090811

REACTIONS (7)
  - EMOTIONAL DISTRESS [None]
  - ANXIETY [None]
  - DEPRESSION [None]
  - AGGRESSION [None]
  - MENTAL DISORDER [None]
  - ABNORMAL BEHAVIOUR [None]
  - IMPAIRED DRIVING ABILITY [None]
